FAERS Safety Report 7927611-0 (Version None)
Quarter: 2011Q4

REPORT INFORMATION
  Report Type: 
  Country: None (occurrence: None)
  Receive Date: 20111118
  Receipt Date: 20111117
  Transmission Date: 20120403
  Serious: Yes (Death)
  Sender: FDA-Public Use
  Company Number: CN-ROCHE-1013943

PATIENT
  Age: 65 Year
  Sex: Male

DRUGS (5)
  1. PREDNISONE TAB [Concomitant]
     Indication: HODGKIN'S DISEASE
     Dates: start: 20111108, end: 20111111
  2. DOXORUBICIN HCL [Concomitant]
     Indication: HODGKIN'S DISEASE
     Dates: start: 20111108, end: 20111111
  3. CYCLOPHOSPHAMIDE [Concomitant]
     Indication: HODGKIN'S DISEASE
     Dates: start: 20111108, end: 20111111
  4. VINCRISTINE [Concomitant]
     Indication: HODGKIN'S DISEASE
     Dates: start: 20111108, end: 20111111
  5. MABTHERA [Suspect]
     Indication: HODGKIN'S DISEASE
     Route: 041
     Dates: start: 20111108, end: 20111111

REACTIONS (1)
  - CARDIAC FAILURE [None]
